APPROVED DRUG PRODUCT: FAMOTIDINE
Active Ingredient: FAMOTIDINE
Strength: 40MG/5ML
Dosage Form/Route: FOR SUSPENSION;ORAL
Application: A219153 | Product #001
Applicant: BIONPHARMA INC
Approved: Jun 23, 2025 | RLD: No | RS: No | Type: DISCN